FAERS Safety Report 25194102 (Version 3)
Quarter: 2025Q3

REPORT INFORMATION
  Report Type: Spontaneous
  Country: US (occurrence: US)
  Receive Date: 20250414
  Receipt Date: 20250925
  Transmission Date: 20251020
  Serious: No
  Sender: SANOFI AVENTIS
  Company Number: US-SA-2025SA106659

PATIENT
  Age: 43 Year
  Sex: Female

DRUGS (18)
  1. DUPIXENT [Suspect]
     Active Substance: DUPILUMAB
     Indication: Asthma
     Route: 058
     Dates: start: 20250401, end: 20250401
  2. DUPIXENT [Suspect]
     Active Substance: DUPILUMAB
     Dosage: 300 MG, QOW
     Route: 058
     Dates: start: 202504
  3. ALBUTEROL SULFATE [Concomitant]
     Active Substance: ALBUTEROL SULFATE
  4. BIOTIN [Concomitant]
     Active Substance: BIOTIN
  5. DEXAMETHASONE SODIUM PHOSPHATE [Concomitant]
     Active Substance: DEXAMETHASONE SODIUM PHOSPHATE
  6. FLONASE ALLERGY RELIEF [Concomitant]
     Active Substance: FLUTICASONE PROPIONATE
  7. FLUCONAZOLE [Concomitant]
     Active Substance: FLUCONAZOLE
  8. FLUTICASONE FUROATE\SALMETEROL XINAFOATE [Concomitant]
     Active Substance: FLUTICASONE FUROATE\SALMETEROL XINAFOATE
  9. LEVOCETIRIZINE DIHYDROCHLORIDE [Concomitant]
     Active Substance: LEVOCETIRIZINE DIHYDROCHLORIDE
  10. LISINOPRIL [Concomitant]
     Active Substance: LISINOPRIL
  11. PANTOPRAZOLE SODIUM [Concomitant]
     Active Substance: PANTOPRAZOLE SODIUM
  12. PREDNISONE [Concomitant]
     Active Substance: PREDNISONE
  13. SINGULAIR [Concomitant]
     Active Substance: MONTELUKAST SODIUM
  14. SPIRIVA [Concomitant]
     Active Substance: TIOTROPIUM BROMIDE MONOHYDRATE
  15. SUCRALFATE [Concomitant]
     Active Substance: SUCRALFATE
  16. TEZSPIRE [Concomitant]
     Active Substance: TEZEPELUMAB-EKKO
  17. TRELEGY ELLIPTA [Concomitant]
     Active Substance: FLUTICASONE FUROATE\UMECLIDINIUM BROMIDE\VILANTEROL TRIFENATATE
  18. VITAMIN B12 [Concomitant]
     Active Substance: CYANOCOBALAMIN

REACTIONS (5)
  - Impaired quality of life [Unknown]
  - Oropharyngeal pain [Unknown]
  - Headache [Unknown]
  - Asthma [Unknown]
  - Drug ineffective [Unknown]

NARRATIVE: CASE EVENT DATE: 20250101
